FAERS Safety Report 15713491 (Version 1)
Quarter: 2018Q4

REPORT INFORMATION
  Report Type: Spontaneous
  Country: JP (occurrence: JP)
  Receive Date: 20181212
  Receipt Date: 20181212
  Transmission Date: 20190205
  Serious: Yes (Hospitalization)
  Sender: FDA-Public Use
  Company Number: JP-EISAI MEDICAL RESEARCH-EC-2018-048941

PATIENT
  Age: 74 Year
  Sex: Female

DRUGS (1)
  1. LENVATINIB [Suspect]
     Active Substance: LENVATINIB
     Indication: PAPILLARY THYROID CANCER
     Dosage: UNKNOWN
     Route: 048

REACTIONS (3)
  - Oesophageal fistula [Unknown]
  - Impaired healing [Unknown]
  - Wound infection [Unknown]
